FAERS Safety Report 23967754 (Version 2)
Quarter: 2024Q2

REPORT INFORMATION
  Report Type: Spontaneous
  Country: US (occurrence: US)
  Receive Date: 20240612
  Receipt Date: 20240620
  Transmission Date: 20240716
  Serious: No
  Sender: FDA-Public Use
  Company Number: US-SA-SAC20240605000824

PATIENT
  Sex: Female

DRUGS (2)
  1. DUPIXENT [Suspect]
     Active Substance: DUPILUMAB
     Indication: Transient acantholytic dermatosis
     Dosage: 600 MG, 1X
     Route: 058
  2. DUPIXENT [Suspect]
     Active Substance: DUPILUMAB
     Indication: Dermatitis atopic
     Dosage: 300 MG, QOW
     Route: 065

REACTIONS (7)
  - Skin fissures [Unknown]
  - Pruritus [Unknown]
  - Cholecystectomy [Unknown]
  - Product use in unapproved indication [Unknown]
  - Injection site pain [Not Recovered/Not Resolved]
  - Dizziness [Not Recovered/Not Resolved]
  - Wrong technique in device usage process [Unknown]
